FAERS Safety Report 23836127 (Version 2)
Quarter: 2024Q2

REPORT INFORMATION
  Report Type: Spontaneous
  Country: US (occurrence: US)
  Receive Date: 20240509
  Receipt Date: 20240621
  Transmission Date: 20240715
  Serious: No
  Sender: FDA-Public Use
  Company Number: US-BAYER-2024A063721

PATIENT
  Age: 48 Year
  Sex: Female

DRUGS (1)
  1. CLIMARA PRO [Suspect]
     Active Substance: ESTRADIOL\LEVONORGESTREL
     Dosage: UNK
     Route: 062
     Dates: start: 2021

REACTIONS (5)
  - Application site irritation [None]
  - Application site erythema [None]
  - Application site pustules [None]
  - Application site vesicles [None]
  - Device adhesion issue [None]

NARRATIVE: CASE EVENT DATE: 20240101
